FAERS Safety Report 19370806 (Version 3)
Quarter: 2021Q2

REPORT INFORMATION
  Report Type: Report from Study
  Country: JP (occurrence: JP)
  Receive Date: 20210604
  Receipt Date: 20210627
  Transmission Date: 20210717
  Serious: Yes (Other)
  Sender: FDA-Public Use
  Company Number: JP-JNJFOC-20210559007

PATIENT

DRUGS (1)
  1. STELARA [Suspect]
     Active Substance: USTEKINUMAB
     Indication: CROHN^S DISEASE
     Route: 058

REACTIONS (6)
  - Rash [Unknown]
  - Oedema [Unknown]
  - Infection [Unknown]
  - Drug ineffective [Unknown]
  - Uterine cancer [Unknown]
  - Hypoaesthesia [Unknown]
